FAERS Safety Report 24069620 (Version 2)
Quarter: 2024Q3

REPORT INFORMATION
  Report Type: Report from Study
  Country: AT (occurrence: AT)
  Receive Date: 20240710
  Receipt Date: 20240710
  Transmission Date: 20241016
  Serious: No
  Sender: ROCHE
  Company Number: AT-ROCHE-3266462

PATIENT
  Age: 69 Year
  Sex: Male
  Weight: 51.0 kg

DRUGS (21)
  1. ALECTINIB [Suspect]
     Active Substance: ALECTINIB
     Indication: Lung cancer metastatic
     Route: 048
     Dates: start: 20220704
  2. SPIRIVA [Concomitant]
     Active Substance: TIOTROPIUM BROMIDE MONOHYDRATE
     Indication: Chronic obstructive pulmonary disease
     Dosage: MEDICATION - ONGOING
     Route: 048
  3. SULTANOL [Concomitant]
     Active Substance: ALBUTEROL SULFATE
     Indication: Chronic obstructive pulmonary disease
     Dosage: MEDICATION IS ONGOING
     Route: 048
  4. ASPIRIN [Concomitant]
     Active Substance: ASPIRIN
     Indication: Hypertension
     Dosage: MEDICATION ONGOING: YES
     Route: 048
  5. FENOLIP (AUSTRIA) [Concomitant]
     Route: 048
  6. IVABRADINE [Concomitant]
     Active Substance: IVABRADINE
     Dosage: MEDICATION ONGOING: YES
     Route: 048
  7. ENTRESTO [Concomitant]
     Active Substance: SACUBITRIL\VALSARTAN
     Indication: Cardiomyopathy
     Dosage: MEDICATION ONGOING: YES
     Route: 048
  8. PANTOPRAZOLE [Concomitant]
     Active Substance: PANTOPRAZOLE
     Indication: Gastrooesophageal reflux disease
     Dosage: MEDICATION ONGOING: YES
     Route: 048
  9. PULMICORT TURBUHALER [Concomitant]
     Active Substance: BUDESONIDE
     Indication: Chronic obstructive pulmonary disease
     Dosage: MEDICATION ONGOING: YES
     Route: 048
  10. BISOPROLOL FUMARATE [Concomitant]
     Active Substance: BISOPROLOL FUMARATE
     Indication: Hypertension
     Dosage: MEDICATION ONGOING: YES
     Route: 048
  11. TAMSULOSIN HYDROCHLORIDE [Concomitant]
     Active Substance: TAMSULOSIN HYDROCHLORIDE
     Indication: Ureteral stent insertion
     Dosage: MEDICATION ONGOING: YES
     Route: 048
  12. NICOLAN (AUSTRIA) [Concomitant]
     Indication: Cardiomyopathy
     Dosage: MEDICATION ONGOING: YES
     Route: 048
  13. ATORVASTATIN CALCIUM [Concomitant]
     Active Substance: ATORVASTATIN CALCIUM
     Route: 048
  14. FENOTEROL HYDROBROMIDE\IPRATROPIUM BROMIDE [Concomitant]
     Active Substance: FENOTEROL HYDROBROMIDE\IPRATROPIUM BROMIDE
     Indication: Chronic obstructive pulmonary disease
     Dosage: MEDICATION DOSE FORM INHALANT, MEDICATION DOSE 200 PUFF, MEDICATION FREQUENCY PRN AND MEDICATION ONG
     Route: 048
  15. SPIRONOLACTONE [Concomitant]
     Active Substance: SPIRONOLACTONE
     Indication: Ureteral stent insertion
     Dosage: MEDICATION ONGOING YES
     Route: 048
  16. SODIUM BICARBONATE [Concomitant]
     Active Substance: SODIUM BICARBONATE
     Indication: Chronic kidney disease
     Dosage: MEDICATION ONGOING YES
     Route: 048
  17. CHOLECALCIFEROL [Concomitant]
     Active Substance: CHOLECALCIFEROL
     Route: 048
     Dates: start: 202305
  18. ASCORBIC ACID\CALCIUM PHOSPHATE\CHOLECALCIFEROL\CITRIC ACID MONOHYDRAT [Concomitant]
     Active Substance: ASCORBIC ACID\CALCIUM PHOSPHATE\CHOLECALCIFEROL\CITRIC ACID MONOHYDRATE
     Route: 048
  19. FOLIC ACID [Concomitant]
     Active Substance: FOLIC ACID
     Route: 048
     Dates: start: 202307
  20. ERYTHROPOIETIN [Concomitant]
     Active Substance: ERYTHROPOIETIN
     Route: 030
     Dates: start: 202307
  21. EZETIMIBE\ROSUVASTATIN CALCIUM [Concomitant]
     Active Substance: EZETIMIBE\ROSUVASTATIN CALCIUM
     Route: 001

REACTIONS (1)
  - Myalgia [Recovering/Resolving]

NARRATIVE: CASE EVENT DATE: 20220705
